FAERS Safety Report 15669494 (Version 1)
Quarter: 2018Q4

REPORT INFORMATION
  Report Type: Spontaneous
  Country: US (occurrence: US)
  Receive Date: 20181119
  Receipt Date: 20181119
  Transmission Date: 20190205
  Serious: Yes (Hospitalization)
  Sender: FDA-Public Use
  Company Number: None

PATIENT
  Age: 61 Year
  Sex: Female

DRUGS (8)
  1. PREDNISONE. [Concomitant]
     Active Substance: PREDNISONE
  2. FOLIC ACID. [Concomitant]
     Active Substance: FOLIC ACID
  3. HYDROCO/APAP [Concomitant]
     Active Substance: ACETAMINOPHEN\HYDROCODONE
  4. HUMIRA [Suspect]
     Active Substance: ADALIMUMAB
     Indication: RHEUMATOID ARTHRITIS
     Route: 058
     Dates: start: 20181207
  5. ADVIL [Concomitant]
     Active Substance: IBUPROFEN
  6. ASPIRIN-81 [Concomitant]
  7. METHOTREXATE. [Concomitant]
     Active Substance: METHOTREXATE
  8. ONE-A-DAY [Concomitant]
     Active Substance: VITAMINS

REACTIONS (2)
  - Ankle operation [None]
  - Condition aggravated [None]

NARRATIVE: CASE EVENT DATE: 20181031
